FAERS Safety Report 6438221-9 (Version None)
Quarter: 2009Q4

REPORT INFORMATION
  Report Type: 
  Country: None (occurrence: None)
  Receive Date: 20091109
  Receipt Date: 20091026
  Transmission Date: 20100525
  Serious: Yes (Hospitalization)
  Sender: FDA-Public Use
  Company Number: FR-2009-2207

PATIENT
  Age: 61 Year
  Sex: Male

DRUGS (1)
  1. NAVELBINE [Suspect]
     Indication: BLADDER TRANSITIONAL CELL CARCINOMA STAGE III
     Dosage: 50 MG IV
     Route: 042
     Dates: start: 20090803

REACTIONS (3)
  - ANAEMIA [None]
  - LEUKOPENIA [None]
  - RENAL FAILURE ACUTE [None]
